FAERS Safety Report 12455937 (Version 1)
Quarter: 2016Q2

REPORT INFORMATION
  Report Type: Spontaneous
  Country: US (occurrence: US)
  Receive Date: 20160610
  Receipt Date: 20160610
  Transmission Date: 20160815
  Serious: No
  Sender: FDA-Public Use
  Company Number: US-BAYER-2016-114258

PATIENT
  Age: 74 Year
  Sex: Female
  Weight: 71.65 kg

DRUGS (9)
  1. VITAMIN K2 [Concomitant]
     Active Substance: MENAQUINONE 6
  2. COD LIVER OIL [Concomitant]
     Active Substance: COD LIVER OIL
  3. ALEVE [Suspect]
     Active Substance: NAPROXEN SODIUM
     Indication: ARTHRALGIA
     Dosage: 2 DF, UNK
     Route: 048
  4. ALEVE [Suspect]
     Active Substance: NAPROXEN SODIUM
     Indication: ARTHRALGIA
  5. VITAMIN D [Concomitant]
     Active Substance: CHOLECALCIFEROL
  6. MAGNESIUM [Concomitant]
     Active Substance: MAGNESIUM
  7. CALCIUM [Concomitant]
     Active Substance: CALCIUM
  8. COLLAGEN [Concomitant]
     Active Substance: COLLAGEN
  9. CALAMINE [CALAMINE] [Concomitant]

REACTIONS (1)
  - Drug ineffective [None]
